FAERS Safety Report 19891429 (Version 1)
Quarter: 2021Q3

REPORT INFORMATION
  Report Type: Spontaneous
  Country: US (occurrence: US)
  Receive Date: 20210928
  Receipt Date: 20210928
  Transmission Date: 20211014
  Serious: No
  Sender: FDA-Public Use
  Company Number: US-VERTEX PHARMACEUTICALS-2021-014737

PATIENT
  Age: 69 Year
  Sex: Male

DRUGS (13)
  1. DIGOXIN. [Concomitant]
     Active Substance: DIGOXIN
  2. MAGOX [Concomitant]
  3. LISINOPRIL. [Concomitant]
     Active Substance: LISINOPRIL
     Dosage: UNK
  4. VITAMIN D3 [Concomitant]
     Active Substance: CHOLECALCIFEROL
     Dosage: 4000 IU
  5. LEVALBUTEROL [LEVOSALBUTAMOL] [Concomitant]
     Active Substance: LEVALBUTEROL
  6. TRIKAFTA [Suspect]
     Active Substance: ELEXACAFTOR\IVACAFTOR\TEZACAFTOR
     Indication: CYSTIC FIBROSIS
     Dosage: UNK
     Route: 048
     Dates: end: 2021
  7. VITAMIN B12 [COBAMAMIDE] [Concomitant]
     Active Substance: COBAMAMIDE
  8. EYLEA [Concomitant]
     Active Substance: AFLIBERCEPT
     Dosage: INJECTIONS
  9. POTASSIUM CITRATE [CITRIC ACID;POTASSIUM CITRATE] [Concomitant]
  10. COREG [Concomitant]
     Active Substance: CARVEDILOL
  11. FENOFIBRATE. [Concomitant]
     Active Substance: FENOFIBRATE
  12. FAMOTIDINE. [Concomitant]
     Active Substance: FAMOTIDINE
  13. METHYL FOLATE [Concomitant]
     Active Substance: LEVOMEFOLATE CALCIUM

REACTIONS (8)
  - Fluid imbalance [Not Recovered/Not Resolved]
  - Breast swelling [Not Recovered/Not Resolved]
  - Galactostasis [Not Recovered/Not Resolved]
  - Nipple pain [Not Recovered/Not Resolved]
  - Vision blurred [Not Recovered/Not Resolved]
  - Nipple swelling [Not Recovered/Not Resolved]
  - Retinal disorder [Not Recovered/Not Resolved]
  - Lens discolouration [Not Recovered/Not Resolved]
